FAERS Safety Report 20479939 (Version 1)
Quarter: 2022Q1

REPORT INFORMATION
  Report Type: Report from Study
  Country: IT (occurrence: IT)
  Receive Date: 20220216
  Receipt Date: 20220216
  Transmission Date: 20220423
  Serious: Yes (Hospitalization)
  Sender: FDA-Public Use
  Company Number: None

PATIENT
  Age: 63 Year
  Sex: Male

DRUGS (8)
  1. PRADAXA [Suspect]
     Active Substance: DABIGATRAN ETEXILATE MESYLATE
     Indication: Product used for unknown indication
     Dates: start: 20210101
  2. METFORMIN [Concomitant]
     Active Substance: METFORMIN HYDROCHLORIDE
     Indication: Product used for unknown indication
  3. ALIFLUS DISKUS 50 MICROGRAMMI/100 MICROGRAMMI/DOSE DI POLVERE PER INAL [Concomitant]
     Indication: Product used for unknown indication
  4. IRBESARTAN [Concomitant]
     Active Substance: IRBESARTAN
     Indication: Product used for unknown indication
  5. ALLOPURINOL [Concomitant]
     Active Substance: ALLOPURINOL
     Indication: Product used for unknown indication
  6. LUVION 100 MG CAPSULE RIGIDE [Concomitant]
     Indication: Product used for unknown indication
  7. SPIRIVA 18 MICROGRAMMI, POLVERE PER INALAZIONE, CAPSULA RIGIDA [Concomitant]
     Indication: Product used for unknown indication
  8. NEBIVOLOL [Concomitant]
     Active Substance: NEBIVOLOL
     Indication: Product used for unknown indication

REACTIONS (1)
  - Microcytic anaemia [Unknown]

NARRATIVE: CASE EVENT DATE: 20220115
